FAERS Safety Report 8817578 (Version 8)
Quarter: 2014Q1

REPORT INFORMATION
  Report Type: Report from Study
  Country: US (occurrence: US)
  Receive Date: 20121001
  Receipt Date: 20140123
  Transmission Date: 20141002
  Serious: Yes (Life-Threatening, Hospitalization)
  Sender: FDA-Public Use
  Company Number: US-NOVOPROD-359995

PATIENT
  Age: 75 Year
  Sex: Male
  Weight: 90.66 kg

DRUGS (5)
  1. LIRAGLUTIDE FLEXPEN [Suspect]
     Indication: TYPE 2 DIABETES MELLITUS
     Dosage: 1.8 MG, QD
     Route: 058
     Dates: start: 20120308
  2. NITROGLYCERIN [Concomitant]
     Indication: CORONARY ARTERY DISEASE
     Dosage: UNK
     Dates: start: 1986
  3. ASPIRIN [Concomitant]
     Indication: PROPHYLAXIS
     Dosage: 81 MG, QD
     Dates: start: 1986
  4. ISOSORBIDE MONONITRATE [Concomitant]
     Indication: CORONARY ARTERY DISEASE
     Dosage: 30 MG, QD
     Dates: start: 1986
  5. CARVEDILOL [Concomitant]
     Indication: CORONARY ARTERY DISEASE
     Dosage: 12.5 MG, QD
     Dates: start: 1986

REACTIONS (2)
  - Cardiac discomfort [Recovered/Resolved]
  - Percutaneous coronary intervention [Recovered/Resolved]
